FAERS Safety Report 16807003 (Version 1)
Quarter: 2019Q3

REPORT INFORMATION
  Report Type: Spontaneous
  Country: US (occurrence: US)
  Receive Date: 20190913
  Receipt Date: 20190913
  Transmission Date: 20191005
  Serious: No
  Sender: FDA-Public Use
  Company Number: US-SA-2019SA249196

PATIENT
  Sex: Male

DRUGS (1)
  1. ADMELOG [Suspect]
     Active Substance: INSULIN LISPRO
     Dosage: 6 UNITS WITH MEALS AND A SLIDING SCALE
     Route: 065

REACTIONS (3)
  - Rash generalised [Unknown]
  - Eye swelling [Unknown]
  - Swelling face [Unknown]
